FAERS Safety Report 6595518-X (Version None)
Quarter: 2010Q1

REPORT INFORMATION
  Report Type: 
  Country: None (occurrence: None)
  Receive Date: 20100223
  Receipt Date: 20090901
  Transmission Date: 20100710
  Serious: Yes (Hospitalization, Other)
  Sender: FDA-Public Use
  Company Number: TR-JNJFOC-20090902222

PATIENT
  Age: 18 Month
  Sex: Male

DRUGS (5)
  1. TOPAMAX [Suspect]
     Indication: EPILEPSY
     Route: 065
  2. TOPAMAX [Suspect]
     Route: 065
  3. VIGABATRIN [Concomitant]
     Route: 065
  4. PRIMIDONE [Concomitant]
     Route: 065
  5. SYNACTHEN [Concomitant]
     Route: 065

REACTIONS (3)
  - HYPOHIDROSIS [None]
  - OFF LABEL USE [None]
  - PYREXIA [None]
